FAERS Safety Report 20583254 (Version 2)
Quarter: 2022Q1

REPORT INFORMATION
  Report Type: Spontaneous
  Country: AR (occurrence: None)
  Receive Date: 20220311
  Receipt Date: 20220328
  Transmission Date: 20220423
  Serious: Yes (Other)
  Sender: FDA-Public Use
  Company Number: AR-Merck Healthcare KGaA-9304793

PATIENT
  Age: 35 Year
  Sex: Female

DRUGS (2)
  1. CLADRIBINE [Suspect]
     Active Substance: CLADRIBINE
     Indication: Multiple sclerosis
     Dosage: WEEK ONE THERAPY
     Route: 048
     Dates: start: 20220202
  2. CLADRIBINE [Suspect]
     Active Substance: CLADRIBINE
     Dosage: WEEK FIVE THERAPY: RECEIVED 2 TABLETS ON 03 MAR 2022 THEN STOPPED AND RESTARTED ON 16 MAR 2022
     Route: 048
     Dates: start: 20220302

REACTIONS (2)
  - Pneumonia viral [Unknown]
  - Lymphopenia [Recovered/Resolved]

NARRATIVE: CASE EVENT DATE: 20220302
